FAERS Safety Report 16537221 (Version 1)
Quarter: 2019Q3

REPORT INFORMATION
  Report Type: Other
  Country: US (occurrence: US)
  Receive Date: 20190707
  Receipt Date: 20190707
  Transmission Date: 20191004
  Serious: No
  Sender: FDA-Public Use
  Company Number: US-AGG-10-2018-0914

PATIENT

DRUGS (5)
  1. AGGRASTAT [Suspect]
     Active Substance: TIROFIBAN HYDROCHLORIDE
     Indication: ANTIPLATELET THERAPY
     Route: 040
  2. INTRAVENOUS ANTICOAGULANT (NOT SPECIFIED) [Concomitant]
  3. ORAL P2Y12 INHIBITOR (NOT SPECIFIED) [Concomitant]
  4. AGGRASTAT [Suspect]
     Active Substance: TIROFIBAN HYDROCHLORIDE
     Indication: ANTIPLATELET THERAPY
     Dosage: 0.15MCG/KG/MIN OR 0.075MCG/KG/MIN INFUSION TO COMPLETE A 5 MG/100ML BAG
     Route: 041
  5. ASPIRIN. [Concomitant]
     Active Substance: ASPIRIN

REACTIONS (1)
  - Haemorrhage [Unknown]

NARRATIVE: CASE EVENT DATE: 20180918
